FAERS Safety Report 16707290 (Version 1)
Quarter: 2019Q3

REPORT INFORMATION
  Report Type: Spontaneous
  Country: IT (occurrence: IT)
  Receive Date: 20190815
  Receipt Date: 20190815
  Transmission Date: 20191004
  Serious: Yes (Hospitalization)
  Sender: FDA-Public Use
  Company Number: IT-PURDUE PHARMA-GBR-2019-0069148

PATIENT
  Age: 19 Year
  Sex: Male
  Weight: 83 kg

DRUGS (3)
  1. EN [Suspect]
     Active Substance: DELORAZEPAM
     Indication: PANIC ATTACK
     Dosage: UNK
     Route: 065
     Dates: start: 20190716, end: 20190716
  2. MORPHINE SULFATE. [Suspect]
     Active Substance: MORPHINE SULFATE
     Indication: PANIC ATTACK
     Dosage: UNK
     Route: 065
     Dates: start: 20190716, end: 20190716
  3. RIVOTRIL [Concomitant]
     Active Substance: CLONAZEPAM
     Indication: AUTISM SPECTRUM DISORDER
     Dosage: 30 DROP, DAILY

REACTIONS (3)
  - Dysphagia [Unknown]
  - Dizziness [Unknown]
  - Confusional state [Unknown]

NARRATIVE: CASE EVENT DATE: 20190716
